APPROVED DRUG PRODUCT: SUNITINIB MALATE
Active Ingredient: SUNITINIB MALATE
Strength: EQ 12.5MG BASE
Dosage Form/Route: CAPSULE;ORAL
Application: A213803 | Product #001 | TE Code: AB
Applicant: TEVA PHARMACEUTICALS USA
Approved: Nov 30, 2021 | RLD: No | RS: No | Type: RX